FAERS Safety Report 10179895 (Version 2)
Quarter: 2014Q2

REPORT INFORMATION
  Report Type: Spontaneous
  Country: FR (occurrence: FR)
  Receive Date: 20140519
  Receipt Date: 20140611
  Transmission Date: 20141212
  Serious: Yes (Hospitalization)
  Sender: FDA-Public Use
  Company Number: FR-PFIZER INC-2014131505

PATIENT
  Age: 59 Year
  Sex: Female

DRUGS (15)
  1. TAZOCILLINE [Suspect]
     Indication: INFLAMMATION
     Dosage: 4 G, 3X/DAY
     Route: 041
     Dates: start: 20131203, end: 20131217
  2. TAZOCILLINE [Suspect]
     Indication: PYREXIA
  3. DIFFU K [Concomitant]
  4. PLAVIX [Concomitant]
  5. PRINCI-B [Concomitant]
  6. SPECIAFOLDINE [Concomitant]
  7. PREVISCAN [Concomitant]
  8. DIGOXIN ^NATIVELLE^ [Concomitant]
  9. LASILIX SPECIAL [Concomitant]
     Dosage: 500 MG, UNK
  10. ATARAX [Concomitant]
     Dosage: 25 MG, UNK
  11. CACIT VITAMINE D3 [Concomitant]
  12. LACTEOL [Concomitant]
  13. TIORFAN [Concomitant]
  14. TAVANIC [Concomitant]
     Indication: INFLAMMATION
  15. TAVANIC [Concomitant]
     Indication: PYREXIA

REACTIONS (7)
  - Hypoperfusion [Recovered/Resolved]
  - Dyspnoea [Recovered/Resolved]
  - Tremor [Recovered/Resolved]
  - Rash macular [Recovered/Resolved]
  - Pyrexia [Recovered/Resolved]
  - Anaphylactic shock [Recovered/Resolved]
  - Blood pressure decreased [Recovered/Resolved]
